FAERS Safety Report 24533112 (Version 2)
Quarter: 2024Q4

REPORT INFORMATION
  Report Type: Spontaneous
  Country: CA (occurrence: CA)
  Receive Date: 20241022
  Receipt Date: 20241216
  Transmission Date: 20250114
  Serious: Yes (Other)
  Sender: PFIZER
  Company Number: CA-PFIZER INC-202400272759

PATIENT
  Age: 56 Year
  Sex: Male

DRUGS (5)
  1. ABRILADA [Suspect]
     Active Substance: ADALIMUMAB-AFZB
     Indication: Rheumatoid arthritis
     Dosage: 40 MG, EVERY 2 WEEK
     Route: 058
     Dates: start: 20231004
  2. ABRILADA [Suspect]
     Active Substance: ADALIMUMAB-AFZB
     Dosage: 40 MG, EVERY 2 WEEK
     Route: 058
     Dates: start: 2024
  3. METHOTREXATE [Concomitant]
     Active Substance: METHOTREXATE
     Indication: Rheumatoid arthritis
     Dosage: 25 MG, WEEKLY
  4. SULFASALAZINE [Concomitant]
     Active Substance: SULFASALAZINE
     Indication: Rheumatoid arthritis
     Dosage: 1 DF
  5. VIMOVO [Concomitant]
     Active Substance: ESOMEPRAZOLE MAGNESIUM\NAPROXEN
     Dosage: 1 DF

REACTIONS (2)
  - Pneumonia [Unknown]
  - Pleural effusion [Unknown]

NARRATIVE: CASE EVENT DATE: 20240101
